FAERS Safety Report 4349454-X (Version None)
Quarter: 2004Q2

REPORT INFORMATION
  Report Type: 
  Country: None (occurrence: None)
  Receive Date: 20040426
  Receipt Date: 20040415
  Transmission Date: 20050107
  Serious: No
  Sender: FDA-Public Use
  Company Number: 2004CG00041

PATIENT
  Age: 52 Year
  Sex: Female
  Weight: 38 kg

DRUGS (1)
  1. NEXIUM [Suspect]
     Indication: EPIGASTRIC DISCOMFORT
     Dosage: 20 MG QD PO
     Route: 048
     Dates: start: 20031219, end: 20031231

REACTIONS (7)
  - AUTOIMMUNE HEPATITIS [None]
  - BILIRUBIN CONJUGATED INCREASED [None]
  - BLOOD BILIRUBIN INCREASED [None]
  - BUDD-CHIARI SYNDROME [None]
  - CYTOLYTIC HEPATITIS [None]
  - HEPATO-LENTICULAR DEGENERATION [None]
  - JAUNDICE [None]
